FAERS Safety Report 7811466-9 (Version None)
Quarter: 2011Q4

REPORT INFORMATION
  Report Type: 
  Country: None (occurrence: None)
  Receive Date: 20111013
  Receipt Date: 20111006
  Transmission Date: 20120403
  Serious: Yes (Hospitalization, Disabling)
  Sender: FDA-Public Use
  Company Number: US-SANOFI-AVENTIS-2011SA066341

PATIENT
  Sex: Female

DRUGS (4)
  1. TAXOTERE [Suspect]
     Indication: BREAST CANCER
     Route: 041
  2. CYTOXAN [Suspect]
     Indication: BREAST CANCER
     Route: 065
  3. TAXOTERE [Suspect]
     Route: 041
  4. NEULASTA [Concomitant]

REACTIONS (3)
  - PERIPHERAL MOTOR NEUROPATHY [None]
  - MOTOR DYSFUNCTION [None]
  - ABASIA [None]
